FAERS Safety Report 12997529 (Version 4)
Quarter: 2017Q1

REPORT INFORMATION
  Report Type: Spontaneous
  Country: JP (occurrence: JP)
  Receive Date: 20161205
  Receipt Date: 20170223
  Transmission Date: 20170428
  Serious: Yes (Other)
  Sender: FDA-Public Use
  Company Number: PHJP2016JP035015

PATIENT
  Age: 54 Year
  Sex: Female
  Weight: 46 kg

DRUGS (3)
  1. RANMARK [Suspect]
     Active Substance: DENOSUMAB
     Indication: METASTASES TO BONE
     Dosage: 122 MG, UNK
     Route: 041
     Dates: start: 20120821, end: 20161121
  2. KADCYLA [Concomitant]
     Active Substance: ADO-TRASTUZUMAB EMTANSINE
     Indication: PRODUCT USED FOR UNKNOWN INDICATION
     Dosage: 100 MG, UNK
     Route: 041
     Dates: start: 20150706, end: 20161121
  3. ZOMETA [Suspect]
     Active Substance: ZOLEDRONIC ACID
     Indication: METASTASES TO BONE
     Dosage: 4 MG, UNK
     Route: 041
     Dates: start: 20100611, end: 20120724

REACTIONS (8)
  - Bone swelling [Unknown]
  - Trismus [Unknown]
  - Swelling face [Not Recovered/Not Resolved]
  - Periostitis [Recovering/Resolving]
  - Exposed bone in jaw [Not Recovered/Not Resolved]
  - Tooth loss [Unknown]
  - Osteomyelitis [Not Recovered/Not Resolved]
  - Periodontitis [Unknown]

NARRATIVE: CASE EVENT DATE: 20150518
